FAERS Safety Report 20337087 (Version 1)
Quarter: 2022Q1

REPORT INFORMATION
  Report Type: Spontaneous
  Country: CA (occurrence: CA)
  Receive Date: 20220114
  Receipt Date: 20220114
  Transmission Date: 20220423
  Serious: Yes (Other)
  Sender: FDA-Public Use
  Company Number: CA-JAZZ-2021-CA-024415

PATIENT
  Age: 70 Year
  Sex: Male

DRUGS (4)
  1. ZEPZELCA [Suspect]
     Active Substance: LURBINECTEDIN
     Indication: Product used for unknown indication
     Dosage: CYCLE 1
  2. ZEPZELCA [Suspect]
     Active Substance: LURBINECTEDIN
     Dosage: CYCLE 2
  3. ZEPZELCA [Suspect]
     Active Substance: LURBINECTEDIN
     Dosage: CYCLE 3
  4. ZEPZELCA [Suspect]
     Active Substance: LURBINECTEDIN
     Dosage: CYCLE 4

REACTIONS (1)
  - Disease progression [Unknown]
